FAERS Safety Report 11777780 (Version 1)
Quarter: 2015Q4

REPORT INFORMATION
  Report Type: Report from Study
  Country: US (occurrence: US)
  Receive Date: 20151125
  Receipt Date: 20151125
  Transmission Date: 20160304
  Serious: Yes (Hospitalization)
  Sender: FDA-Public Use
  Company Number: US-ACTELION-A-US2015-127862

PATIENT
  Age: 65 Year
  Sex: Female

DRUGS (1)
  1. VENTAVIS [Suspect]
     Active Substance: ILOPROST
     Indication: PULMONARY ARTERIAL HYPERTENSION
     Dosage: 6X/ADAY
     Route: 055
     Dates: start: 20131220

REACTIONS (2)
  - Umbilical hernia perforation [Recovering/Resolving]
  - Postoperative wound infection [Unknown]

NARRATIVE: CASE EVENT DATE: 20151023
